FAERS Safety Report 23090142 (Version 1)
Quarter: 2023Q4

REPORT INFORMATION
  Report Type: Spontaneous
  Country: US (occurrence: None)
  Receive Date: 20231019
  Receipt Date: 20231019
  Transmission Date: 20240109
  Serious: Yes (Hospitalization)
  Sender: FDA-Public Use
  Company Number: None

PATIENT
  Sex: Female

DRUGS (2)
  1. TOREMIFENE CITRATE [Suspect]
     Active Substance: TOREMIFENE CITRATE
     Dosage: FREQUENCY : DAILY;?
     Route: 048
     Dates: start: 20220630
  2. TOREMIFENE CITRATE [Suspect]
     Active Substance: TOREMIFENE CITRATE
     Dosage: FREQUENCY : DAILY;?
     Route: 048

REACTIONS (4)
  - Gastric operation [None]
  - Haemorrhage [None]
  - Therapy interrupted [None]
  - Thrombosis [None]
